FAERS Safety Report 7530378-1 (Version None)
Quarter: 2011Q2

REPORT INFORMATION
  Report Type: 
  Country: None (occurrence: None)
  Receive Date: 20110607
  Receipt Date: 20110525
  Transmission Date: 20111010
  Serious: Yes (Other)
  Sender: FDA-Public Use
  Company Number: JP-ELI_LILLY_AND_COMPANY-JP201105007839

PATIENT
  Age: 12 Year
  Sex: Male

DRUGS (3)
  1. CARBAMAZEPINE [Concomitant]
     Indication: EPILEPSY
     Route: 048
  2. STRATTERA [Suspect]
     Dosage: 50 MG, QD
     Route: 048
  3. STRATTERA [Suspect]
     Indication: ATTENTION DEFICIT/HYPERACTIVITY DISORDER
     Dosage: UNK, QD
     Route: 048

REACTIONS (3)
  - DEPRESSED MOOD [None]
  - SUICIDAL IDEATION [None]
  - SELF ESTEEM DECREASED [None]
